FAERS Safety Report 26185421 (Version 1)
Quarter: 2025Q4

REPORT INFORMATION
  Report Type: Spontaneous
  Country: EU (occurrence: EU)
  Receive Date: 20251222
  Receipt Date: 20251222
  Transmission Date: 20260118
  Serious: Yes (Hospitalization, Other)
  Sender: AUROBINDO
  Company Number: EU-AFSSAPS-NC2025001946

PATIENT
  Age: 81 Year
  Sex: Female
  Weight: 75 kg

DRUGS (5)
  1. IBUPROFEN [Suspect]
     Active Substance: IBUPROFEN
     Indication: Pain
     Dosage: 400 MILLIGRAM, ONCE A DAY
     Route: 061
     Dates: start: 20250619, end: 20250715
  2. CIPROFLOXACIN [Suspect]
     Active Substance: CIPROFLOXACIN
     Indication: Osteitis
     Dosage: 1500 MILLIGRAM, ONCE A DAY
     Dates: start: 20250623, end: 20250715
  3. CIPROFLOXACIN [Suspect]
     Active Substance: CIPROFLOXACIN
     Dosage: 500 MILLIGRAM, ONCE A DAY
     Route: 061
     Dates: start: 20250716, end: 20250823
  4. CEFTAZIDIME [Suspect]
     Active Substance: CEFTAZIDIME
     Indication: Osteitis
     Dosage: 6 GRAM, ONCE A DAY
     Dates: start: 20250623, end: 20250715
  5. CEFTAZIDIME [Suspect]
     Active Substance: CEFTAZIDIME
     Dosage: 3 GRAM, ONCE A DAY
     Route: 061
     Dates: start: 20250716, end: 20250823

REACTIONS (1)
  - Acute kidney injury [Recovered/Resolved with Sequelae]

NARRATIVE: CASE EVENT DATE: 20250716
